FAERS Safety Report 12896508 (Version 1)
Quarter: 2016Q4

REPORT INFORMATION
  Report Type: Spontaneous
  Country: GR (occurrence: GR)
  Receive Date: 20161031
  Receipt Date: 20161031
  Transmission Date: 20170207
  Serious: Yes (Life-Threatening, Hospitalization)
  Sender: FDA-Public Use
  Company Number: GR-VALIDUS PHARMACEUTICALS LLC-GR-2016VAL002913

PATIENT
  Age: 22 Year
  Sex: Female

DRUGS (1)
  1. FUROSEMIDE. [Suspect]
     Active Substance: FUROSEMIDE
     Indication: PRODUCT USED FOR UNKNOWN INDICATION
     Dosage: UNK

REACTIONS (11)
  - Hyponatraemia [Unknown]
  - Blood creatinine increased [Unknown]
  - Hypochloraemia [Unknown]
  - Electrocardiogram QT prolonged [Unknown]
  - Dizziness [Unknown]
  - Electrocardiogram ST segment abnormal [Unknown]
  - Myalgia [Unknown]
  - Asthenia [Unknown]
  - Hypokalaemia [Unknown]
  - Metabolic alkalosis [Unknown]
  - Glomerular filtration rate decreased [Unknown]
